FAERS Safety Report 17985322 (Version 1)
Quarter: 2020Q3

REPORT INFORMATION
  Report Type: Spontaneous
  Country: US (occurrence: US)
  Receive Date: 20200706
  Receipt Date: 20200706
  Transmission Date: 20201103
  Serious: Yes (Disabling, Other)
  Sender: FDA-Public Use
  Company Number: US-BAYER-2020-131061

PATIENT
  Age: 29 Year
  Sex: Female

DRUGS (1)
  1. CIPRO [Suspect]
     Active Substance: CIPROFLOXACIN HYDROCHLORIDE
     Indication: URINARY TRACT INFECTION
     Dosage: 500 MG, BID
     Dates: start: 202004, end: 202004

REACTIONS (15)
  - Crying [Unknown]
  - Hallucination [Recovered/Resolved]
  - Fatigue [Not Recovered/Not Resolved]
  - Tendon discomfort [Unknown]
  - Tinnitus [Recovering/Resolving]
  - Dry eye [Recovering/Resolving]
  - Suicidal ideation [Not Recovered/Not Resolved]
  - Gait disturbance [Unknown]
  - Tendonitis [Not Recovered/Not Resolved]
  - Joint noise [Recovering/Resolving]
  - Muscular weakness [Not Recovered/Not Resolved]
  - Orthostatic hypotension [Not Recovered/Not Resolved]
  - Insomnia [Not Recovered/Not Resolved]
  - Fatigue [Unknown]
  - Dyspnoea [Not Recovered/Not Resolved]

NARRATIVE: CASE EVENT DATE: 2020
